FAERS Safety Report 9540202 (Version 3)
Quarter: 2013Q3

REPORT INFORMATION
  Report Type: Spontaneous
  Country: JP (occurrence: JP)
  Receive Date: 20130920
  Receipt Date: 20130927
  Transmission Date: 20140515
  Serious: No
  Sender: FDA-Public Use
  Company Number: JP-BRISTOL-MYERS SQUIBB COMPANY-19158443

PATIENT
  Age: 71 Year
  Sex: Male

DRUGS (6)
  1. ELIQUIS [Suspect]
     Dosage: 03-28JUN13:10MG/DAY?28JUN13-CONT:2.5MG/DAY
     Route: 048
     Dates: start: 20130603
  2. PLETAAL [Concomitant]
     Indication: CEREBRAL INFARCTION
     Dosage: FOR PREVENTION OF REOCCURRENCE OF CEREBRAL INFARCTION DUE TO NON-VALVULAR ATRIAL FIBRILLATION
     Dates: start: 20070131
  3. FLIVAS [Concomitant]
     Route: 048
     Dates: start: 20021220
  4. LAC-B [Concomitant]
     Route: 048
     Dates: start: 20021220
  5. MAGNESIUM OXIDE [Concomitant]
     Route: 048
     Dates: start: 20021220
  6. EVIPROSTAT [Concomitant]
     Dosage: 1DF: 6TABS
     Route: 048

REACTIONS (2)
  - Epistaxis [Recovered/Resolved]
  - Thrombocytopenia [Recovered/Resolved]
